FAERS Safety Report 17132010 (Version 2)
Quarter: 2020Q2

REPORT INFORMATION
  Report Type: Spontaneous
  Country: US (occurrence: US)
  Receive Date: 20191209
  Receipt Date: 20200609
  Transmission Date: 20200713
  Serious: Yes (Life-Threatening, Hospitalization, Disabling, Other)
  Sender: FDA-Public Use
  Company Number: US-SA-2019SA340005

PATIENT

DRUGS (22)
  1. PLAVIX [Suspect]
     Active Substance: CLOPIDOGREL BISULFATE
     Dosage: 75 MG
     Route: 048
     Dates: start: 20190731, end: 20190731
  2. ACETYLSALICYLIC ACID [Suspect]
     Active Substance: ASPIRIN
     Dosage: 100 MG
     Route: 065
     Dates: start: 20190819, end: 20190819
  3. ONDANSETRON [Concomitant]
     Active Substance: ONDANSETRON
     Indication: ADVERSE EVENT
     Dosage: 4 MG
     Route: 065
     Dates: start: 20191008, end: 20191008
  4. FENTANYL. [Concomitant]
     Active Substance: FENTANYL
     Indication: ADVERSE EVENT
     Dosage: 25 UG
     Route: 065
     Dates: start: 20191008, end: 20191008
  5. ACETYLSALICYLIC ACID [Suspect]
     Active Substance: ASPIRIN
     Dosage: 100 MG
     Route: 065
     Dates: start: 20190731, end: 20190731
  6. ACETYLSALICYLIC ACID [Suspect]
     Active Substance: ASPIRIN
     Dosage: 100 MG
     Route: 065
     Dates: start: 20190926, end: 20190926
  7. CEFAZOLIN [Concomitant]
     Active Substance: CEFAZOLIN
     Indication: ADVERSE EVENT
     Dosage: 1 G
     Route: 065
     Dates: start: 20191008, end: 20191008
  8. PROPOFOL. [Concomitant]
     Active Substance: PROPOFOL
     Indication: ADVERSE EVENT
     Dosage: 200 MG
     Route: 065
     Dates: start: 20191008, end: 20191008
  9. LIDOCAINE. [Concomitant]
     Active Substance: LIDOCAINE
     Indication: ADVERSE EVENT
     Dosage: 70 MG, UNK
     Route: 065
     Dates: start: 20191008, end: 20191008
  10. PHENYLEPHRINE [Concomitant]
     Active Substance: PHENYLEPHRINE HYDROCHLORIDE
     Indication: ADVERSE EVENT
     Dosage: 400 UG
     Route: 065
     Dates: start: 20191008, end: 20191008
  11. PLAVIX [Suspect]
     Active Substance: CLOPIDOGREL BISULFATE
     Dosage: 75 MG
     Route: 048
     Dates: start: 20190801, end: 20190818
  12. PLAVIX [Suspect]
     Active Substance: CLOPIDOGREL BISULFATE
     Dosage: 75 MG
     Route: 048
     Dates: start: 20190819, end: 20190819
  13. ATORVASTATIN [Concomitant]
     Active Substance: ATORVASTATIN
     Dosage: 40 MG
     Dates: start: 20190513
  14. METOPROLOL. [Concomitant]
     Active Substance: METOPROLOL
     Dosage: 25 MG
     Dates: end: 20191008
  15. ISOVUE 370 [Concomitant]
     Active Substance: IOPAMIDOL
     Dosage: 100 UNK
     Dates: start: 20190904, end: 20190904
  16. ACETYLSALICYLIC ACID [Suspect]
     Active Substance: ASPIRIN
     Dosage: 100 MG
     Route: 065
     Dates: start: 20190801, end: 20190818
  17. NITROGLYCERINE [Concomitant]
     Active Substance: NITROGLYCERIN
     Indication: ADVERSE EVENT
     Dosage: 0.5 MG
     Route: 065
     Dates: start: 20191008, end: 20191008
  18. ACETYLSALICYLIC ACID [Suspect]
     Active Substance: ASPIRIN
     Dosage: 100 MG
     Route: 065
     Dates: start: 20190820, end: 20190924
  19. ACETYLSALICYLIC ACID [Suspect]
     Active Substance: ASPIRIN
     Dosage: 100 MG
     Route: 065
     Dates: start: 20190925, end: 20190925
  20. POTASSIUM CHLORIDE. [Concomitant]
     Active Substance: POTASSIUM CHLORIDE
     Indication: ADVERSE EVENT
     Dosage: 20 UNK
     Route: 065
     Dates: start: 20191008, end: 20191008
  21. EPHEDRIN [Concomitant]
     Active Substance: EPHEDRINE HYDROCHLORIDE
     Indication: ADVERSE EVENT
     Dosage: 25 MG
     Route: 065
     Dates: start: 20191008, end: 20191008
  22. AMLODIPINE [Concomitant]
     Active Substance: AMLODIPINE BESYLATE
     Dosage: 5 MG
     Dates: start: 20190513, end: 20191008

REACTIONS (2)
  - Ischaemic stroke [Recovering/Resolving]
  - Cerebral artery stenosis [Recovered/Resolved]

NARRATIVE: CASE EVENT DATE: 20190913
